FAERS Safety Report 4498507-4 (Version None)
Quarter: 2004Q4

REPORT INFORMATION
  Report Type: 
  Country: None (occurrence: None)
  Receive Date: 20041105
  Receipt Date: 20041029
  Transmission Date: 20050328
  Serious: Yes (Death)
  Sender: FDA-Public Use
  Company Number: 163-20785-04090116

PATIENT
  Age: 45 Year
  Sex: Female

DRUGS (1)
  1. THALOMID [Suspect]
     Indication: PSORIASIS
     Dosage: 50 MG, DAILY, ORAL
     Route: 048
     Dates: start: 20030528, end: 20040101

REACTIONS (1)
  - COMPLETED SUICIDE [None]
